FAERS Safety Report 4490203-2 (Version None)
Quarter: 2004Q4

REPORT INFORMATION
  Report Type: 
  Country: None (occurrence: None)
  Receive Date: 20041027
  Receipt Date: 20041014
  Transmission Date: 20050328
  Serious: Yes (Hospitalization)
  Sender: FDA-Public Use
  Company Number: 2004076283

PATIENT
  Age: 47 Year
  Sex: Male
  Weight: 102.0593 kg

DRUGS (3)
  1. GEODON [Suspect]
     Indication: BIPOLAR I DISORDER
     Dosage: 160 MG (80 MG, 2 IN 1 D)
     Dates: start: 20021001
  2. ALL OTHER THERAPEUTIC PRDOUCTS (ALL OTHER THERAPEUTIC PRODUCTS) [Suspect]
     Indication: BIPOLAR I DISORDER
     Dates: start: 20040201
  3. LITHIUM CARBONATE [Concomitant]

REACTIONS (4)
  - AGITATION [None]
  - DRUG INEFFECTIVE [None]
  - PRESCRIBED OVERDOSE [None]
  - RASH [None]
